FAERS Safety Report 19238899 (Version 2)
Quarter: 2021Q2

REPORT INFORMATION
  Report Type: Spontaneous
  Country: US (occurrence: US)
  Receive Date: 20210510
  Receipt Date: 20210511
  Transmission Date: 20210717
  Serious: No
  Sender: FDA-Public Use
  Company Number: US-ORGANON-O2105USA000155

PATIENT
  Age: 33 Year
  Sex: Female

DRUGS (17)
  1. FOLLISTIM AQ [Suspect]
     Active Substance: FOLLITROPIN
     Indication: INFERTILITY FEMALE
     Dosage: 200?300 UNIT , AS DIRECTED
     Route: 058
     Dates: start: 20200813
  2. DEXAMETHASONE. [Concomitant]
     Active Substance: DEXAMETHASONE
  3. MENOPUR [Concomitant]
     Active Substance: FOLLITROPIN\LUTEINIZING HORMONE
  4. ONDANSETRON [Concomitant]
     Active Substance: ONDANSETRON
  5. CABERGOLINE. [Concomitant]
     Active Substance: CABERGOLINE
  6. LEUPROLIDE ACE [Concomitant]
     Active Substance: LEUPROLIDE ACETATE
  7. OVIDREL [CHORIONIC GONADOTROPHIN] [Concomitant]
  8. FOLLISTIM AQ [Suspect]
     Active Substance: FOLLITROPIN
     Indication: INFERTILITY FEMALE
     Dosage: 350?450 UNIT AS DIRECTED
     Route: 058
     Dates: start: 20200813
  9. AZITHROMYCIN ANHYDROUS. [Concomitant]
     Active Substance: AZITHROMYCIN ANHYDROUS
  10. CETROTIDE [Concomitant]
     Active Substance: CETRORELIX ACETATE
  11. GANIRELIX ACETATE. [Concomitant]
     Active Substance: GANIRELIX ACETATE
  12. ESTRADIOL. [Concomitant]
     Active Substance: ESTRADIOL
  13. METHYLPREDNISOLONE. [Concomitant]
     Active Substance: METHYLPREDNISOLONE
  14. CIPROFLOXACIN. [Concomitant]
     Active Substance: CIPROFLOXACIN
  15. CYANOCOBALAMIN. [Concomitant]
     Active Substance: CYANOCOBALAMIN
  16. HYDROCODONE BITARTRATE AND ACETAMINOPHEN [Concomitant]
     Active Substance: ACETAMINOPHEN\HYDROCODONE BITARTRATE
  17. SYNTHROID [Concomitant]
     Active Substance: LEVOTHYROXINE SODIUM

REACTIONS (1)
  - Abdominal distension [Unknown]

NARRATIVE: CASE EVENT DATE: 20200818
